FAERS Safety Report 11425269 (Version 2)
Quarter: 2015Q3

REPORT INFORMATION
  Report Type: Spontaneous
  Country: US (occurrence: US)
  Receive Date: 20150821
  Receipt Date: 20150903
  Transmission Date: 20151125
  Serious: No
  Sender: FDA-Public Use
  Company Number: US-ELI_LILLY_AND_COMPANY-US201103008165

PATIENT
  Age: 72 Year
  Sex: Female

DRUGS (4)
  1. HUMULIN N [Suspect]
     Active Substance: INSULIN HUMAN
     Indication: DIABETES MELLITUS
     Dosage: 4 U, EACH MORNING
  2. HUMALOG [Suspect]
     Active Substance: INSULIN LISPRO
     Indication: DIABETES MELLITUS
     Dosage: 5 U, EACH MORNING
  3. HUMALOG [Suspect]
     Active Substance: INSULIN LISPRO
     Dosage: 10 U, EACH EVENING
  4. HUMULIN N [Suspect]
     Active Substance: INSULIN HUMAN
     Dosage: 34 U, EACH EVENING

REACTIONS (4)
  - Muscular weakness [Not Recovered/Not Resolved]
  - Wrist fracture [Unknown]
  - Limb injury [Unknown]
  - Arthritis [Not Recovered/Not Resolved]
